FAERS Safety Report 11673208 (Version 1)
Quarter: 2015Q4

REPORT INFORMATION
  Report Type: Spontaneous
  Country: US (occurrence: None)
  Receive Date: 20151027
  Receipt Date: 20151027
  Transmission Date: 20160304
  Serious: No
  Sender: FDA-Public Use
  Company Number: None

PATIENT
  Age: 58 Year
  Sex: Female

DRUGS (5)
  1. CEPHALEXIN. [Concomitant]
     Active Substance: CEPHALEXIN
  2. FASLODEX [Concomitant]
     Active Substance: FULVESTRANT
  3. TAMOXIFEN [Concomitant]
     Active Substance: TAMOXIFEN
  4. IBRANCE [Suspect]
     Active Substance: PALBOCICLIB
     Indication: BREAST CANCER
     Dosage: 125MG  QD 21 DAYS  PO
     Route: 048
     Dates: start: 20150929
  5. LETROZOLE. [Concomitant]
     Active Substance: LETROZOLE

REACTIONS (3)
  - Condition aggravated [None]
  - Hot flush [None]
  - Muscle spasms [None]
